FAERS Safety Report 6122485-5 (Version None)
Quarter: 2009Q1

REPORT INFORMATION
  Report Type: 
  Country: None (occurrence: None)
  Receive Date: 20090318
  Receipt Date: 20090109
  Transmission Date: 20090719
  Serious: No
  Sender: FDA-Public Use
  Company Number: US-ASTRAZENECA-2009UW00856

PATIENT
  Age: 79 Year
  Sex: Male

DRUGS (2)
  1. SYMBICORT [Suspect]
     Dosage: 160/4.5 MG 2 PUFFS TWICE DAILY
     Route: 055
  2. SYMBICORT [Suspect]
     Dosage: 80/4.5 MCG
     Route: 055

REACTIONS (1)
  - MICTURITION DISORDER [None]
